FAERS Safety Report 5195419-8 (Version None)
Quarter: 2006Q4

REPORT INFORMATION
  Report Type: 
  Country: None (occurrence: None)
  Receive Date: 20061229
  Receipt Date: 20061220
  Transmission Date: 20070319
  Serious: Yes (Other)
  Sender: FDA-Public Use
  Company Number: JP-PFIZER INC-2006156074

PATIENT
  Age: 80 Year
  Sex: Male

DRUGS (6)
  1. DETRUSITOL SR [Suspect]
     Dosage: DAILY DOSE:4MG
     Route: 048
     Dates: start: 20061001, end: 20061201
  2. ADALAT [Concomitant]
     Route: 048
  3. STOMILASE [Concomitant]
     Route: 048
  4. CINAL [Concomitant]
     Route: 048
  5. NU LOTAN [Concomitant]
     Route: 048
  6. LASIX [Concomitant]

REACTIONS (1)
  - BLOOD CREATININE INCREASED [None]
